FAERS Safety Report 7984293-X (Version None)
Quarter: 2011Q4

REPORT INFORMATION
  Report Type: 
  Country: None (occurrence: None)
  Receive Date: 20111214
  Receipt Date: 20111130
  Transmission Date: 20120403
  Serious: Yes (Death)
  Sender: FDA-Public Use
  Company Number: AXC-2011-000509

PATIENT
  Sex: Male

DRUGS (1)
  1. MESALAMINE [Suspect]
     Indication: DIVERTICULUM

REACTIONS (3)
  - CONDITION AGGRAVATED [None]
  - DIVERTICULITIS [None]
  - INTESTINAL PERFORATION [None]
